FAERS Safety Report 4305973-3 (Version None)
Quarter: 2004Q1

REPORT INFORMATION
  Report Type: 
  Country: None (occurrence: None)
  Receive Date: 20040224
  Receipt Date: 20040218
  Transmission Date: 20041129
  Serious: Yes (Other)
  Sender: FDA-Public Use
  Company Number: US-JNJFOC-20031203537

PATIENT
  Age: 34 Year
  Sex: Female
  Weight: 68.0396 kg

DRUGS (4)
  1. TOPAMAX [Suspect]
     Indication: HEADACHE
     Dosage: 200 MG, IN 1 DAY, ORAL
     Route: 048
     Dates: start: 20011206, end: 20011206
  2. COUMADIN [Concomitant]
  3. LEVOXYL [Concomitant]
  4. ZOLOFT [Concomitant]

REACTIONS (5)
  - MEDICATION ERROR [None]
  - NERVE INJURY [None]
  - PARALYSIS [None]
  - SOMNOLENCE [None]
  - VISION BLURRED [None]
